FAERS Safety Report 17097019 (Version 1)
Quarter: 2019Q4

REPORT INFORMATION
  Report Type: Spontaneous
  Country: US (occurrence: US)
  Receive Date: 20191104
  Receipt Date: 20191104
  Transmission Date: 20200122
  Serious: No
  Sender: FDA-Public Use
  Company Number: None

PATIENT
  Age: 62 Year
  Sex: Female

DRUGS (17)
  1. DICLOFENAC [Concomitant]
     Active Substance: DICLOFENAC
  2. OMEPRAZOLE. [Concomitant]
     Active Substance: OMEPRAZOLE
  3. XELJANZ [Suspect]
     Active Substance: TOFACITINIB CITRATE
     Route: 048
  4. LOSARTAN POT [Concomitant]
     Active Substance: LOSARTAN POTASSIUM
  5. CIPROFLOXACN [Concomitant]
     Active Substance: CIPROFLOXACIN
  6. FOLIC ACID. [Concomitant]
     Active Substance: FOLIC ACID
  7. PREMARIN [Concomitant]
     Active Substance: ESTROGENS, CONJUGATED
  8. SYNTHROID [Concomitant]
     Active Substance: LEVOTHYROXINE SODIUM
  9. METOPROL SUC [Concomitant]
  10. TRAMADOL HCL [Concomitant]
     Active Substance: TRAMADOL HYDROCHLORIDE
  11. TIZANIDINE. [Concomitant]
     Active Substance: TIZANIDINE
  12. AMLODIPINE [Concomitant]
     Active Substance: AMLODIPINE BESYLATE
  13. DULOXETINE. [Concomitant]
     Active Substance: DULOXETINE
  14. NITROFUR MAC [Concomitant]
     Active Substance: NITROFURANTOIN
  15. HYDROCHLOROT [Concomitant]
     Active Substance: HYDROCHLOROTHIAZIDE
  16. MECLIZINE [Concomitant]
     Active Substance: MECLIZINE HYDROCHLORIDE
  17. DULOXETINE. [Concomitant]
     Active Substance: DULOXETINE

REACTIONS (3)
  - Abdominal pain upper [None]
  - Therapy cessation [None]
  - Knee arthroplasty [None]

NARRATIVE: CASE EVENT DATE: 20191102
